FAERS Safety Report 25660643 (Version 3)
Quarter: 2025Q4

REPORT INFORMATION
  Report Type: Spontaneous
  Country: IN (occurrence: IN)
  Receive Date: 20250808
  Receipt Date: 20251212
  Transmission Date: 20260118
  Serious: Yes (Other)
  Sender: TORRENT PHARMA INC.
  Company Number: IN-TORRENT-00004040

PATIENT
  Age: 31 Year
  Sex: Female
  Weight: 80 kg

DRUGS (1)
  1. ARIPIPRAZOLE [Suspect]
     Active Substance: ARIPIPRAZOLE
     Indication: Schizophrenia
     Dosage: NIGHT ONLY ONCE
     Route: 048
     Dates: start: 20250625, end: 20250731

REACTIONS (5)
  - Drug ineffective [Unknown]
  - Insomnia [Not Recovered/Not Resolved]
  - Disturbance in attention [Not Recovered/Not Resolved]
  - Anxiety [Not Recovered/Not Resolved]
  - Hallucination, auditory [Not Recovered/Not Resolved]

NARRATIVE: CASE EVENT DATE: 20250729
